FAERS Safety Report 20750166 (Version 1)
Quarter: 2022Q2

REPORT INFORMATION
  Report Type: Spontaneous
  Country: JP (occurrence: JP)
  Receive Date: 20220426
  Receipt Date: 20220426
  Transmission Date: 20220721
  Serious: Yes (Death)
  Sender: FDA-Public Use
  Company Number: JP-JAZZ-2022-JP-012889

PATIENT
  Age: 50 Year

DRUGS (1)
  1. DEFITELIO [Suspect]
     Active Substance: DEFIBROTIDE SODIUM
     Indication: Product used for unknown indication
     Dosage: 4000 MILLIGRAM, QD
     Route: 042
     Dates: start: 20220323, end: 2022

REACTIONS (1)
  - Infection [Fatal]

NARRATIVE: CASE EVENT DATE: 20220101
